FAERS Safety Report 8061243-1 (Version None)
Quarter: 2012Q1

REPORT INFORMATION
  Report Type: 
  Country: None (occurrence: None)
  Receive Date: 20120120
  Receipt Date: 20110722
  Transmission Date: 20120608
  Serious: No
  Sender: FDA-Public Use
  Company Number: US-ALLERGAN-1110006US

PATIENT
  Age: 54 Year
  Sex: Male

DRUGS (2)
  1. RESTASIS [Suspect]
     Indication: DRY EYE
     Dosage: 2 GTT, BID, EACH EYE
     Route: 047
     Dates: start: 20070101
  2. CRESTOR [Concomitant]
     Indication: CARDIAC DISORDER
     Dosage: 1 TABLET, QD
     Route: 048
     Dates: start: 20110701, end: 20110701

REACTIONS (4)
  - FATIGUE [None]
  - DRUG INTERACTION [None]
  - MYALGIA [None]
  - ASTHENIA [None]
